FAERS Safety Report 5253896-8 (Version None)
Quarter: 2007Q1

REPORT INFORMATION
  Report Type: 
  Country: None (occurrence: None)
  Receive Date: 20070228
  Receipt Date: 20070228
  Transmission Date: 20070707
  Serious: No
  Sender: FDA-Public Use
  Company Number: None

PATIENT
  Sex: Female
  Weight: 78.0187 kg

DRUGS (1)
  1. SYNTHROID [Suspect]

REACTIONS (5)
  - DRUG EXPOSURE DURING PREGNANCY [None]
  - DRUG INEFFECTIVE [None]
  - PHARMACEUTICAL PRODUCT COMPLAINT [None]
  - PREGNANCY [None]
  - THERAPEUTIC RESPONSE UNEXPECTED WITH DRUG SUBSTITUTION [None]
